FAERS Safety Report 9942255 (Version 3)
Quarter: 2014Q2

REPORT INFORMATION
  Report Type: Spontaneous
  Country: JP (occurrence: JP)
  Receive Date: 20140303
  Receipt Date: 20140411
  Transmission Date: 20141212
  Serious: Yes (Disabling)
  Sender: FDA-Public Use
  Company Number: JP-IAC JAPAN XML-GBR-2014-0017154

PATIENT
  Age: 84 Year
  Sex: Female

DRUGS (12)
  1. NORSPAN 5MG [Suspect]
     Indication: PAIN
     Dosage: 5 MCG, Q1H
     Route: 062
     Dates: start: 20140125, end: 20140203
  2. FELNABION [Concomitant]
     Dosage: UNK
     Route: 061
     Dates: start: 20131118, end: 20140208
  3. PRORENAL [Concomitant]
     Indication: LUMBAR SPINAL STENOSIS
     Dosage: 15 MCG, DAILY
     Route: 048
     Dates: start: 20060622
  4. MAINTATE [Concomitant]
     Indication: HYPERTENSION
     Dosage: 2.5 MG, DAILY
     Route: 048
     Dates: start: 20080415
  5. LUPRAC [Concomitant]
     Indication: CARDIAC FAILURE CONGESTIVE
     Dosage: 8 MG, DAILY
     Route: 048
     Dates: start: 20101211
  6. ALDACTONE A [Concomitant]
     Indication: CARDIAC FAILURE CONGESTIVE
     Dosage: 25 MG, DAILY
     Route: 048
     Dates: start: 20101211
  7. LANIRAPID [Concomitant]
     Indication: ATRIAL FIBRILLATION
     Dosage: 0.1 MG, DAILY
     Route: 048
     Dates: start: 20090427
  8. VASOLAN                            /00014302/ [Concomitant]
     Indication: ATRIAL FIBRILLATION
     Dosage: 120 MG, DAILY
     Route: 048
     Dates: start: 20090427
  9. WARFARIN [Concomitant]
     Indication: ATRIAL FIBRILLATION
     Dosage: 2 MG, DAILY
     Route: 048
     Dates: start: 20090427
  10. TAKEPRON [Concomitant]
     Indication: GASTROOESOPHAGEAL REFLUX DISEASE
     Dosage: 15 MG, DAILY
     Route: 048
     Dates: start: 19880415
  11. PREDONINE                          /00016201/ [Concomitant]
     Indication: RHEUMATOID ARTHRITIS
     Dosage: 5 MG, DAILY
     Route: 048
     Dates: start: 20130907
  12. ALFAROL [Concomitant]
     Indication: OSTEOPOROSIS
     Dosage: 0.5 MCG, DAILY
     Route: 048
     Dates: start: 20131004

REACTIONS (3)
  - Cardiomegaly [Recovering/Resolving]
  - Choking sensation [Recovering/Resolving]
  - Oedema [Recovered/Resolved]
